FAERS Safety Report 19908003 (Version 13)
Quarter: 2023Q1

REPORT INFORMATION
  Report Type: Report from Study
  Country: US (occurrence: US)
  Receive Date: 20210930
  Receipt Date: 20230217
  Transmission Date: 20230418
  Serious: Yes (Hospitalization, Other)
  Sender: FDA-Public Use
  Company Number: NVSC2021US219588

PATIENT
  Age: 85 Year
  Sex: Female
  Weight: 77.098 kg

DRUGS (5)
  1. TREPROSTINIL [Suspect]
     Active Substance: TREPROSTINIL
     Indication: Pulmonary arterial hypertension
     Dosage: 58 NG/KG/MIN, CONT
     Route: 058
     Dates: start: 20210721
  2. TREPROSTINIL [Suspect]
     Active Substance: TREPROSTINIL
     Dosage: 58 NG/KG/MIN, CONT
     Route: 058
  3. TREPROSTINIL [Suspect]
     Active Substance: TREPROSTINIL
     Dosage: 58 NG/KG/MIN, CONT
     Route: 058
  4. NIFEDIPINE [Concomitant]
     Active Substance: NIFEDIPINE
     Indication: Product used for unknown indication
     Dosage: UNK
     Route: 065
  5. DILTIAZEM [Concomitant]
     Active Substance: DILTIAZEM
     Indication: Product used for unknown indication
     Dosage: UNK
     Route: 065

REACTIONS (15)
  - Cerebrovascular accident [Unknown]
  - Cellulitis [Unknown]
  - Loss of consciousness [Unknown]
  - Fall [Unknown]
  - Abdominal discomfort [Unknown]
  - Malaise [Recovering/Resolving]
  - Therapeutic response unexpected [Unknown]
  - Dust allergy [Unknown]
  - Diarrhoea [Unknown]
  - Pain in extremity [Unknown]
  - Dizziness [Unknown]
  - Headache [Recovering/Resolving]
  - Infusion site pain [Unknown]
  - Infusion site erythema [Unknown]
  - Incorrect dose administered [Unknown]

NARRATIVE: CASE EVENT DATE: 20221220
